FAERS Safety Report 21191522 (Version 1)
Quarter: 2022Q3

REPORT INFORMATION
  Report Type: Spontaneous
  Country: ES (occurrence: ES)
  Receive Date: 20220809
  Receipt Date: 20220809
  Transmission Date: 20221027
  Serious: Yes (Other)
  Sender: FDA-Public Use
  Company Number: ES-BAYER-2022P009643

PATIENT
  Sex: Male

DRUGS (1)
  1. RIVAROXABAN [Suspect]
     Active Substance: RIVAROXABAN
     Indication: Product used for unknown indication
     Dosage: 15 MG, QD
     Route: 048

REACTIONS (3)
  - Renal impairment [Unknown]
  - Rash [Recovering/Resolving]
  - Rash pruritic [Recovering/Resolving]
